FAERS Safety Report 16297065 (Version 2)
Quarter: 2019Q3

REPORT INFORMATION
  Report Type: Report from Study
  Country: GB (occurrence: GB)
  Receive Date: 20190510
  Receipt Date: 20190826
  Transmission Date: 20191004
  Serious: Yes (Other)
  Sender: FDA-Public Use
  Company Number: GB-TEVA-2019-GB-1047462

PATIENT
  Age: 30 Year
  Sex: Female

DRUGS (1)
  1. COPAXONE [Suspect]
     Active Substance: GLATIRAMER ACETATE
     Indication: MULTIPLE SCLEROSIS
     Dates: start: 20180614, end: 20190424

REACTIONS (14)
  - Palpitations [Unknown]
  - Loss of consciousness [Unknown]
  - Petit mal epilepsy [Unknown]
  - Malaise [Recovering/Resolving]
  - Chills [Recovered/Resolved]
  - Relapsing-remitting multiple sclerosis [Unknown]
  - Therapy cessation [Unknown]
  - Anxiety [Unknown]
  - Rash [Unknown]
  - Injection related reaction [Unknown]
  - Impaired work ability [Unknown]
  - Feeling hot [Unknown]
  - Dyspnoea [Unknown]
  - Influenza [Recovered/Resolved]

NARRATIVE: CASE EVENT DATE: 201904
